FAERS Safety Report 18154267 (Version 1)
Quarter: 2020Q3

REPORT INFORMATION
  Report Type: Spontaneous
  Country: US (occurrence: US)
  Receive Date: 20200817
  Receipt Date: 20200817
  Transmission Date: 20201103
  Serious: No
  Sender: FDA-Public Use
  Company Number: US-SA-2020SA211128

PATIENT

DRUGS (1)
  1. DUPIXENT [Suspect]
     Active Substance: DUPILUMAB
     Indication: ASTHMA
     Dosage: 300 MG, QOW
     Route: 058
     Dates: start: 20200623

REACTIONS (6)
  - Injection site urticaria [Recovered/Resolved]
  - Grip strength decreased [Unknown]
  - Injection site reaction [Unknown]
  - Injection site mass [Unknown]
  - Pain in extremity [Unknown]
  - Injection site exfoliation [Unknown]
